FAERS Safety Report 11519805 (Version 1)
Quarter: 2015Q3

REPORT INFORMATION
  Report Type: Spontaneous
  Country: US (occurrence: US)
  Receive Date: 20150918
  Receipt Date: 20150918
  Transmission Date: 20151125
  Serious: No
  Sender: FDA-Public Use
  Company Number: US-DRREDDYS-USA/USA/14/0044655

PATIENT
  Sex: Female

DRUGS (1)
  1. NAPROXEN SODIUM 220 MG [Suspect]
     Active Substance: NAPROXEN SODIUM
     Indication: ARTHRALGIA
     Dosage: TOOK TWO CAPLETS EVERY 12 HOURS AS NEEDED
     Route: 048

REACTIONS (3)
  - No adverse event [Unknown]
  - Product label issue [Unknown]
  - Expired product administered [Unknown]
